FAERS Safety Report 7104928-3 (Version None)
Quarter: 2010Q4

REPORT INFORMATION
  Report Type: 
  Country: None (occurrence: None)
  Receive Date: 20101110
  Receipt Date: 20101101
  Transmission Date: 20110411
  Serious: No
  Sender: FDA-Public Use
  Company Number: 021432

PATIENT
  Sex: Female

DRUGS (1)
  1. KEPPRA [Suspect]
     Dosage: 1000 MG BID

REACTIONS (9)
  - ANAEMIA [None]
  - ANXIETY [None]
  - BACK PAIN [None]
  - DIZZINESS [None]
  - EARLY SATIETY [None]
  - HEADACHE [None]
  - MEMORY IMPAIRMENT [None]
  - PRESYNCOPE [None]
  - WEIGHT DECREASED [None]
